FAERS Safety Report 9478232 (Version 1)
Quarter: 2013Q3

REPORT INFORMATION
  Report Type: Spontaneous
  Country: US (occurrence: None)
  Receive Date: 20130822
  Receipt Date: 20130822
  Transmission Date: 20140515
  Serious: Yes (Other)
  Sender: FDA-Public Use
  Company Number: AUR-APL-2013-06916

PATIENT
  Age: 55 Year
  Sex: Male

DRUGS (7)
  1. VALACYCLOVIR [Suspect]
     Indication: GENITAL HERPES
     Route: 048
  2. ACICLOVIR [Suspect]
     Indication: GENITAL HERPES
     Route: 048
  3. FAMCICLOVIR [Suspect]
     Indication: GENITAL HERPES
     Route: 048
  4. TRIMETHOPRIM SULFAMETHOXAZOLE (BACTRIM) [Concomitant]
  5. DARUNAVIR (DARUNAVIR) [Concomitant]
  6. RITONAVIR (RITONAVIR) [Concomitant]
  7. EMTRICITABINE W/TENOFOVIR (EMTRICITABINE W/TENOFOVIR) [Concomitant]

REACTIONS (5)
  - Nephropathy toxic [None]
  - Blood creatinine increased [None]
  - Drug ineffective [None]
  - Genital herpes [None]
  - Disease progression [None]
